FAERS Safety Report 8758004 (Version 1)
Quarter: 2012Q4

REPORT INFORMATION
  Report Type: 
  Country: US (occurrence: US)
  Receive Date: 20120828
  Receipt Date: 20120828
  Transmission Date: 20130627
  Serious: Yes (Hospitalization)
  Sender: FDA-Public Use
  Company Number: US-AMGEN-USASP2012053405

PATIENT
  Age: 61 Year
  Sex: Female
  Weight: 71 kg

DRUGS (6)
  1. PEGFILGRASTIM [Suspect]
     Indication: CHEMOTHERAPY
     Dosage: UNK
     Dates: end: 20120628
  2. BEVACIZUMAB [Suspect]
     Indication: BREAST CANCER
     Dosage: 10 mg/kg, q2wk
     Dates: start: 20120404
  3. PACLITAXEL [Suspect]
     Indication: BREAST CANCER
     Dosage: 80 mg/m2, UNK
     Route: 042
     Dates: start: 20120404
  4. CARBOPLATIN [Suspect]
     Indication: BREAST CANCER
     Dosage: 6 UNK, UNK
     Route: 042
     Dates: start: 20120404
  5. DOXORUBICIN [Suspect]
     Indication: BREAST CANCER
     Dosage: 60 mg/m2, q2wk
     Route: 042
  6. CYCLOPHOSPHAMIDE [Suspect]
     Indication: BREAST CANCER
     Dosage: 600 mg/m2, q2wk
     Route: 042

REACTIONS (1)
  - Dyspnoea [Not Recovered/Not Resolved]
